FAERS Safety Report 4943462-3 (Version None)
Quarter: 2006Q1

REPORT INFORMATION
  Report Type: 
  Country: None (occurrence: None)
  Receive Date: 20060309
  Receipt Date: 20060227
  Transmission Date: 20060701
  Serious: Yes (Other)
  Sender: FDA-Public Use
  Company Number: 2006028773

PATIENT
  Sex: Female

DRUGS (6)
  1. LYRICA [Suspect]
     Indication: FIBROMYALGIA
     Dosage: 50 MG (25 MG, 2 IN 1 D)
     Dates: start: 20060101
  2. NEURONTIN [Suspect]
     Indication: FIBROMYALGIA
  3. ZOLOFT [Suspect]
     Indication: FIBROMYALGIA
  4. ELAVIL [Suspect]
     Indication: FIBROMYALGIA
  5. AMBIEN [Concomitant]
  6. TOPAMAX [Concomitant]

REACTIONS (12)
  - ABNORMAL BEHAVIOUR [None]
  - ANXIETY [None]
  - DIPLOPIA [None]
  - EPISTAXIS [None]
  - FALL [None]
  - FEELING ABNORMAL [None]
  - FEELING JITTERY [None]
  - HYPERPHAGIA [None]
  - INSOMNIA [None]
  - NERVOUSNESS [None]
  - PAIN [None]
  - SURGERY [None]
